FAERS Safety Report 7205393-8 (Version None)
Quarter: 2010Q4

REPORT INFORMATION
  Report Type: 
  Country: None (occurrence: None)
  Receive Date: 20101231
  Receipt Date: 20101229
  Transmission Date: 20110411
  Serious: Yes (Other)
  Sender: FDA-Public Use
  Company Number: US-PFIZER INC-2010181851

PATIENT
  Age: 53 Year
  Sex: Male

DRUGS (1)
  1. CHANTIX [Suspect]
     Indication: SMOKING CESSATION THERAPY
     Dosage: UNK
     Dates: start: 20101101

REACTIONS (4)
  - AGITATION [None]
  - DEPRESSION [None]
  - DRUG INEFFECTIVE [None]
  - SINUSITIS [None]
